FAERS Safety Report 9014859 (Version 1)
Quarter: 2013Q1

REPORT INFORMATION
  Report Type: Spontaneous
  Country: US (occurrence: None)
  Receive Date: 20130109
  Receipt Date: 20130109
  Transmission Date: 20140127
  Serious: Yes (Other)
  Sender: FDA-Public Use
  Company Number: None

PATIENT
  Age: 56 Year
  Sex: Female
  Weight: 52.16 kg

DRUGS (3)
  1. METRONIZADOLE 500 MG 3X/DAY TAKEN 4 DAYS TOTAL WATSON LABS [Suspect]
     Dosage: 500 MG 1 ONLY ORAL
     Route: 048
     Dates: start: 20121009, end: 20121012
  2. METRONIZADOLE 500 MG 3X/DAY TAKEN 4 DAYS TOTAL WATSON LABS [Suspect]
     Dosage: 500 MG 1 ONLY ORAL
     Route: 048
     Dates: start: 20121009, end: 20121012
  3. DIFLUCAN [Suspect]
     Dosage: 200 MG 1 ONLY ORAL
     Route: 048
     Dates: start: 20121009

REACTIONS (2)
  - Headache [None]
  - Tinnitus [None]
